FAERS Safety Report 10348142 (Version 1)
Quarter: 2014Q3

REPORT INFORMATION
  Report Type: Spontaneous
  Country: GB (occurrence: GB)
  Receive Date: 20140729
  Receipt Date: 20140729
  Transmission Date: 20150326
  Serious: Yes (Disabling, Other)
  Sender: FDA-Public Use
  Company Number: GB-ELI_LILLY_AND_COMPANY-GB201407006699

PATIENT
  Age: 22 Year
  Sex: Female
  Weight: 63 kg

DRUGS (3)
  1. DULOXETINE HYDROCHLORIDE. [Interacting]
     Active Substance: DULOXETINE HYDROCHLORIDE
     Dosage: 5 MG, UNK
     Route: 048
     Dates: end: 201107
  2. DULOXETINE HYDROCHLORIDE. [Suspect]
     Active Substance: DULOXETINE HYDROCHLORIDE
     Indication: FIBROMYALGIA
     Dosage: 120 MG, UNK
     Route: 048
     Dates: start: 201008
  3. ALCOHOL. [Interacting]
     Active Substance: ALCOHOL
     Indication: PRODUCT USED FOR UNKNOWN INDICATION
     Dosage: UNK, UNKNOWN
     Route: 065

REACTIONS (14)
  - Self injurious behaviour [Recovered/Resolved]
  - Somnolence [Recovered/Resolved]
  - Fatigue [Recovered/Resolved]
  - Off label use [Recovered/Resolved]
  - Tremor [Recovered/Resolved]
  - Nightmare [Recovered/Resolved]
  - Alcohol interaction [Unknown]
  - Night sweats [Recovered/Resolved]
  - Nausea [Recovered/Resolved]
  - Amnesia [Recovered/Resolved with Sequelae]
  - Pyrexia [Recovered/Resolved]
  - Dizziness [Recovered/Resolved]
  - Thinking abnormal [Recovered/Resolved]
  - Drug withdrawal syndrome [Recovered/Resolved]

NARRATIVE: CASE EVENT DATE: 201008
